FAERS Safety Report 13260214 (Version 1)
Quarter: 2017Q1

REPORT INFORMATION
  Report Type: Spontaneous
  Country: US (occurrence: US)
  Receive Date: 20170222
  Receipt Date: 20170222
  Transmission Date: 20170428
  Serious: Yes (Other)
  Sender: FDA-Public Use
  Company Number: US-VIFOR (INTERNATIONAL) INC.-VIT-2016-07207

PATIENT
  Age: 74 Year
  Sex: Male

DRUGS (14)
  1. LISINOPRIL. [Concomitant]
     Active Substance: LISINOPRIL
  2. PARICALCITOL. [Concomitant]
     Active Substance: PARICALCITOL
  3. SIMVASTATIN. [Concomitant]
     Active Substance: SIMVASTATIN
  4. SODIUM BICARBONATE. [Concomitant]
     Active Substance: SODIUM BICARBONATE
  5. VELTASSA [Suspect]
     Active Substance: PATIROMER
     Route: 048
  6. FINASTERIDE. [Concomitant]
     Active Substance: FINASTERIDE
  7. HYDRALAZINE HYDROCHLORIDE. [Concomitant]
     Active Substance: HYDRALAZINE HYDROCHLORIDE
  8. MONTELUKAST SODIUM. [Concomitant]
     Active Substance: MONTELUKAST SODIUM
  9. CARVEDILOL. [Concomitant]
     Active Substance: CARVEDILOL
  10. NOVOLOG [Concomitant]
     Active Substance: INSULIN ASPART
  11. VELTASSA [Suspect]
     Active Substance: PATIROMER
     Indication: HYPERKALAEMIA
     Route: 048
     Dates: start: 20160405
  12. BENAZEPRIL HYDROCHLORIDE/AMLODIPINE BESILATE [Concomitant]
  13. LEVEMIR [Concomitant]
     Active Substance: INSULIN DETEMIR
  14. ALLOPURINOL. [Concomitant]
     Active Substance: ALLOPURINOL

REACTIONS (6)
  - Blood pressure increased [Unknown]
  - Drug dose omission [Unknown]
  - Diabetes mellitus [Unknown]
  - Inappropriate schedule of drug administration [Unknown]
  - Colon cancer [Unknown]
  - Gastrointestinal disorder [Unknown]

NARRATIVE: CASE EVENT DATE: 2016
